FAERS Safety Report 20794160 (Version 2)
Quarter: 2022Q2

REPORT INFORMATION
  Report Type: Spontaneous
  Country: US (occurrence: None)
  Receive Date: 20220506
  Receipt Date: 20220616
  Transmission Date: 20220721
  Serious: Yes (Hospitalization, Other)
  Sender: FDA-Public Use
  Company Number: US-Hikma Pharmaceuticals USA Inc.-US-H14001-22-01124

PATIENT
  Age: 12 Year
  Sex: Female
  Weight: 84.1 kg

DRUGS (9)
  1. LEUCOVORIN [Suspect]
     Active Substance: LEUCOVORIN
     Indication: Acute lymphocytic leukaemia
     Route: 042
     Dates: start: 20220227, end: 20220320
  2. LEUCOVORIN [Suspect]
     Active Substance: LEUCOVORIN
     Route: 042
     Dates: start: 20220321
  3. METHOTREXATE [Suspect]
     Active Substance: METHOTREXATE
     Indication: Acute lymphocytic leukaemia
     Route: 042
     Dates: start: 20220225, end: 20220310
  4. METHOTREXATE [Suspect]
     Active Substance: METHOTREXATE
     Route: 042
     Dates: start: 20220318
  5. MERCAPTOPURINE [Suspect]
     Active Substance: MERCAPTOPURINE
     Indication: Acute lymphocytic leukaemia
     Route: 048
     Dates: start: 20220225, end: 20220310
  6. MERCAPTOPURINE [Suspect]
     Active Substance: MERCAPTOPURINE
     Route: 048
  7. RUXOLITINIB [Suspect]
     Active Substance: RUXOLITINIB
     Indication: Acute lymphocytic leukaemia
     Route: 048
     Dates: start: 20220225
  8. VINCRISTINE [Suspect]
     Active Substance: VINCRISTINE
     Indication: Acute lymphocytic leukaemia
     Route: 042
     Dates: start: 20220225, end: 20220310
  9. VINCRISTINE [Suspect]
     Active Substance: VINCRISTINE
     Route: 048
     Dates: start: 20220318

REACTIONS (29)
  - Stomatitis [Recovered/Resolved]
  - Oral pain [Recovered/Resolved]
  - Oral disorder [Recovered/Resolved]
  - Febrile neutropenia [Recovered/Resolved]
  - Chills [Unknown]
  - Hot flush [Unknown]
  - Diarrhoea [Unknown]
  - Thrombocytopenia [Unknown]
  - Pyrexia [Recovered/Resolved]
  - Clostridium test positive [Unknown]
  - Enterocolitis infectious [Unknown]
  - Abdominal pain [Unknown]
  - Product dose omission issue [Unknown]
  - Vomiting [Unknown]
  - Scalloped tongue [Unknown]
  - Hypophagia [Unknown]
  - Condition aggravated [Unknown]
  - Pruritus [Unknown]
  - Rash [Unknown]
  - Pancreatitis [Recovered/Resolved]
  - Splenomegaly [Unknown]
  - Amylase increased [Unknown]
  - Lipase increased [Unknown]
  - Mouth ulceration [Recovering/Resolving]
  - Hunger [Unknown]
  - Fatigue [Unknown]
  - Dizziness [Recovered/Resolved]
  - Oligomenorrhoea [Unknown]
  - Nausea [Recovered/Resolved]

NARRATIVE: CASE EVENT DATE: 20220301
